FAERS Safety Report 6371480-X (Version None)
Quarter: 2009Q3

REPORT INFORMATION
  Report Type: 
  Country: None (occurrence: None)
  Receive Date: 20090923
  Receipt Date: 20071109
  Transmission Date: 20100115
  Serious: Yes (Other)
  Sender: FDA-Public Use
  Company Number: US-ASTRAZENECA-2007UW15670

PATIENT
  Age: 16327 Day
  Sex: Male

DRUGS (5)
  1. SEROQUEL [Suspect]
     Indication: SCHIZOPHRENIA, PARANOID TYPE
     Route: 048
     Dates: start: 20010913, end: 20011101
  2. SEROQUEL [Suspect]
     Route: 048
     Dates: start: 20010913
  3. RISPERDAL [Concomitant]
     Indication: SCHIZOPHRENIA, PARANOID TYPE
     Dosage: 1-3 MG
     Route: 065
     Dates: start: 20000614, end: 20001201
  4. HUMULIN 70/30 [Concomitant]
     Dates: start: 20011124
  5. GLUCOPHAGE [Concomitant]
     Dates: start: 20011124

REACTIONS (5)
  - ASTHENIA [None]
  - DIABETES MELLITUS [None]
  - DIABETIC KETOACIDOSIS [None]
  - FATIGUE [None]
  - HYPERGLYCAEMIA [None]
